FAERS Safety Report 25154382 (Version 3)
Quarter: 2025Q2

REPORT INFORMATION
  Report Type: Spontaneous
  Country: US (occurrence: US)
  Receive Date: 20250403
  Receipt Date: 20250602
  Transmission Date: 20250716
  Serious: No
  Sender: MERCK SHARP & DOHME LLC
  Company Number: US-009507513-2263576

PATIENT
  Sex: Female
  Weight: 85.7 kg

DRUGS (30)
  1. WINREVAIR [Suspect]
     Active Substance: SOTATERCEPT-CSRK
     Route: 058
  2. WINREVAIR [Suspect]
     Active Substance: SOTATERCEPT-CSRK
  3. WINREVAIR [Suspect]
     Active Substance: SOTATERCEPT-CSRK
  4. WINREVAIR [Suspect]
     Active Substance: SOTATERCEPT-CSRK
  5. REMODULIN [Suspect]
     Active Substance: TREPROSTINIL
     Indication: Pulmonary arterial hypertension
     Route: 041
     Dates: start: 20210813
  6. VITAMIN D3 [Concomitant]
     Active Substance: CHOLECALCIFEROL
  7. HYDROXYZINE HYDROCHLORIDE [Concomitant]
     Active Substance: HYDROXYZINE HYDROCHLORIDE
  8. TRAZODONE HCL [Concomitant]
     Active Substance: TRAZODONE HYDROCHLORIDE
  9. POTASSIUM CHLORIDE [Concomitant]
     Active Substance: POTASSIUM CHLORIDE
  10. TERBINAFINE HYDROCHLORIDE [Concomitant]
     Active Substance: TERBINAFINE HYDROCHLORIDE
  11. TADALAFIL [Concomitant]
     Active Substance: TADALAFIL
  12. BUMETANIDE [Concomitant]
     Active Substance: BUMETANIDE
  13. BIOTIN [Concomitant]
     Active Substance: BIOTIN
  14. B12 active [Concomitant]
  15. Flonase allergy relief (fluticasone propionate) [Concomitant]
  16. Imodium a-d (loperamide hydrochloride) [Concomitant]
  17. VITAMINS [Concomitant]
     Active Substance: VITAMINS
  18. FAMOTIDINE [Concomitant]
     Active Substance: FAMOTIDINE
  19. MELATONIN [Concomitant]
     Active Substance: MELATONIN
  20. ALDACTONE [Concomitant]
     Active Substance: SPIRONOLACTONE
  21. Mucinex (guaifenesin) [Concomitant]
  22. OXYGEN [Concomitant]
     Active Substance: OXYGEN
  23. BENADRYL ALLERGY [Concomitant]
     Active Substance: DIPHENHYDRAMINE HYDROCHLORIDE
  24. NEXPLANON [Concomitant]
     Active Substance: ETONOGESTREL
  25. VIIBRYD [Concomitant]
     Active Substance: VILAZODONE HYDROCHLORIDE
  26. ACETAMINOPHEN [Concomitant]
     Active Substance: ACETAMINOPHEN
  27. Advair diskus (fluticasone propionate, salmeterol xinafoate) [Concomitant]
  28. NALTREXONE HYDROCHLORIDE [Concomitant]
     Active Substance: NALTREXONE HYDROCHLORIDE
  29. MOUNJARO [Concomitant]
     Active Substance: TIRZEPATIDE
  30. AMBRISENTAN [Concomitant]
     Active Substance: AMBRISENTAN

REACTIONS (3)
  - Haemoglobin increased [Unknown]
  - Headache [Unknown]
  - Chest pain [Unknown]
